FAERS Safety Report 17861329 (Version 2)
Quarter: 2020Q3

REPORT INFORMATION
  Report Type: Spontaneous
  Country: US (occurrence: US)
  Receive Date: 20200604
  Receipt Date: 20200925
  Transmission Date: 20201103
  Serious: No
  Sender: FDA-Public Use
  Company Number: US-PFIZER INC-2020218004

PATIENT
  Age: 56 Year
  Sex: Male

DRUGS (2)
  1. CHANTIX [Suspect]
     Active Substance: VARENICLINE TARTRATE
     Dosage: 1 MG, 2X/DAY (TAKE 1 TABLET(S) TWICE A DAY BY ORAL ROUTE)
     Route: 048
  2. CHANTIX [Suspect]
     Active Substance: VARENICLINE TARTRATE
     Indication: TOBACCO USER
     Dosage: UNK (0.5 MG (11)?1 MG(42) TABLETS/1 TABLET BY MOUTH FOR 3 DAYS AND THEN 1 TAB TWICE A DAY)
     Route: 048

REACTIONS (2)
  - Dyspnoea [Unknown]
  - Chest pain [Unknown]
